FAERS Safety Report 4737168-3 (Version None)
Quarter: 2005Q3

REPORT INFORMATION
  Report Type: 
  Country: None (occurrence: None)
  Receive Date: 20050808
  Receipt Date: 20050729
  Transmission Date: 20060218
  Serious: Yes (Other)
  Sender: FDA-Public Use
  Company Number: PHBS2005CZ10971

PATIENT
  Age: 25 Year
  Sex: Female

DRUGS (2)
  1. LEPONEX [Suspect]
     Indication: SCHIZOPHRENIA, PARANOID TYPE
     Dosage: 350 MG/D
     Route: 048
     Dates: start: 19960101
  2. LEPONEX [Suspect]
     Dosage: UNK, UNK
     Route: 048

REACTIONS (4)
  - DRUG EXPOSURE DURING PREGNANCY [None]
  - HALLUCINATION [None]
  - PREGNANCY [None]
  - STERILISATION [None]
